FAERS Safety Report 12601466 (Version 1)
Quarter: 2016Q3

REPORT INFORMATION
  Report Type: Spontaneous
  Country: US (occurrence: US)
  Receive Date: 20160728
  Receipt Date: 20160728
  Transmission Date: 20161109
  Serious: No
  Sender: FDA-Public Use
  Company Number: US-ASTRAZENECA-2016SE68572

PATIENT

DRUGS (1)
  1. MOVANTIK [Suspect]
     Active Substance: NALOXEGOL OXALATE
     Dosage: 25 MG DOSE BREAK THE PILL IN HALF AND TAKE IT
     Route: 048

REACTIONS (2)
  - Drug intolerance [Unknown]
  - Intentional product misuse [Unknown]
